FAERS Safety Report 18551271 (Version 1)
Quarter: 2020Q4

REPORT INFORMATION
  Report Type: Spontaneous
  Country: JP (occurrence: JP)
  Receive Date: 20201126
  Receipt Date: 20201126
  Transmission Date: 20210114
  Serious: Yes (Hospitalization)
  Sender: FDA-Public Use
  Company Number: JP-SA-2020SA335684

PATIENT

DRUGS (6)
  1. 5-FU [FLUOROURACIL] [Suspect]
     Active Substance: FLUOROURACIL
     Indication: COLON CANCER
     Dosage: UNK, QOW, ONCE IN 2 WEEKS
     Route: 040
  2. 5-FU [FLUOROURACIL] [Suspect]
     Active Substance: FLUOROURACIL
     Dosage: ONCE IN 2WEEKS
     Route: 041
  3. CALCIUM LEVOFOLINATE [Suspect]
     Active Substance: LEVOLEUCOVORIN CALCIUM
     Indication: COLON CANCER
     Dosage: UNK, QOW, ONCE IN 2 WEEKS
     Route: 041
  4. CAPECITABINE. [Suspect]
     Active Substance: CAPECITABINE
     Indication: COLON CANCER
     Dosage: UNK
     Route: 048
  5. ELPLAT [Suspect]
     Active Substance: OXALIPLATIN
     Indication: COLON CANCER
     Dosage: UNK, QOW, ONCE IN 2 WEEKS
     Route: 041
  6. ELPLAT [Suspect]
     Active Substance: OXALIPLATIN
     Dosage: ONCE IN 2WEEKS
     Route: 041

REACTIONS (1)
  - Dihydropyrimidine dehydrogenase deficiency [Unknown]
